FAERS Safety Report 21021906 (Version 1)
Quarter: 2022Q2

REPORT INFORMATION
  Report Type: Report from Study
  Country: US (occurrence: US)
  Receive Date: 20220629
  Receipt Date: 20220629
  Transmission Date: 20220720
  Serious: Yes (Hospitalization)
  Sender: FDA-Public Use
  Company Number: US-MYLANLABS-2022M1046137

PATIENT
  Age: 66 Year
  Sex: Male
  Weight: 81.6 kg

DRUGS (7)
  1. TORSEMIDE [Suspect]
     Active Substance: TORSEMIDE
     Indication: Bronchiolitis obliterans syndrome
     Dosage: 300 MILLIGRAM, BID
     Route: 048
     Dates: start: 20210125, end: 20210303
  2. TORSEMIDE [Suspect]
     Active Substance: TORSEMIDE
     Dosage: 200 MILLIGRAM, BID
     Route: 048
     Dates: start: 20210323, end: 20210928
  3. TORSEMIDE [Suspect]
     Active Substance: TORSEMIDE
     Dosage: 200 MILLIGRAM, BID
     Route: 048
     Dates: start: 20210929, end: 20220206
  4. PROTONIX [Suspect]
     Active Substance: PANTOPRAZOLE SODIUM
     Indication: Product used for unknown indication
     Dosage: UNK
     Dates: start: 20180306
  5. MARIBAVIR [Suspect]
     Active Substance: MARIBAVIR
     Indication: Product used for unknown indication
     Dosage: UNK
     Dates: start: 20220217
  6. PREDNISONE [Concomitant]
     Active Substance: PREDNISONE
     Dosage: 60 MILLIGRAM, QD
     Dates: start: 20190125
  7. TACROLIMUS [Concomitant]
     Active Substance: TACROLIMUS
     Dosage: 19-JUN-2022 00:00

REACTIONS (2)
  - Cardiac failure acute [Recovered/Resolved]
  - Acute kidney injury [Recovered/Resolved]

NARRATIVE: CASE EVENT DATE: 20220329
